FAERS Safety Report 10208515 (Version 1)
Quarter: 2014Q2

REPORT INFORMATION
  Report Type: Spontaneous
  Country: CN (occurrence: CN)
  Receive Date: 20140530
  Receipt Date: 20140530
  Transmission Date: 20141212
  Serious: Yes (Hospitalization)
  Sender: FDA-Public Use
  Company Number: CN-VIIV HEALTHCARE LIMITED-B0998137A

PATIENT
  Age: 39 Year
  Sex: Female

DRUGS (3)
  1. LAMIVUDINE-HIV [Suspect]
     Indication: HIV INFECTION
     Dosage: .1MG PER DAY
     Route: 048
     Dates: start: 20130427, end: 20130526
  2. ZIDOVUDINE [Suspect]
     Indication: HIV INFECTION
     Dosage: .5G TWICE PER DAY
     Route: 048
     Dates: start: 20130427, end: 20130516
  3. NEVIRAPINE [Concomitant]
     Indication: HIV INFECTION
     Dosage: .2G PER DAY
     Route: 048
     Dates: start: 20130427, end: 20130526

REACTIONS (3)
  - Rash erythematous [Recovered/Resolved]
  - Blister [Recovered/Resolved]
  - Pain [Recovered/Resolved]
